FAERS Safety Report 5910333-5 (Version None)
Quarter: 2008Q4

REPORT INFORMATION
  Report Type: 
  Country: None (occurrence: None)
  Receive Date: 20081007
  Receipt Date: 20071203
  Transmission Date: 20090506
  Serious: Yes (Other)
  Sender: FDA-Public Use
  Company Number: US-ASTRAZENECA-2007UW27521

PATIENT
  Age: 81 Year
  Sex: Female
  Weight: 53.1 kg

DRUGS (2)
  1. ARIMIDEX [Suspect]
     Indication: BREAST CANCER
     Route: 048
     Dates: start: 20070601, end: 20071101
  2. ANTIDEPRESSANTS [Concomitant]

REACTIONS (1)
  - METASTATIC NEOPLASM [None]
